FAERS Safety Report 19023102 (Version 1)
Quarter: 2021Q1

REPORT INFORMATION
  Report Type: Spontaneous
  Country: US (occurrence: US)
  Receive Date: 20210318
  Receipt Date: 20210318
  Transmission Date: 20210420
  Serious: No
  Sender: FDA-Public Use
  Company Number: US-ASTRAZENECA-2021A111999

PATIENT
  Age: 49 Year
  Sex: Female

DRUGS (6)
  1. SYMBICORT [Suspect]
     Active Substance: BUDESONIDE\FORMOTEROL FUMARATE DIHYDRATE
     Indication: ASTHMA
     Dosage: 160/4.5MCG 2 PUFFS TWO TIMES A DAY
     Route: 055
  2. VITAMIN D [Concomitant]
     Active Substance: VITAMIN D NOS
     Route: 065
  3. VITAMIN C [Concomitant]
     Active Substance: ASCORBIC ACID
     Route: 065
  4. PREDNISONE. [Concomitant]
     Active Substance: PREDNISONE
     Route: 065
  5. TURMERIC [Concomitant]
     Active Substance: HERBALS\TURMERIC
     Route: 065
  6. STEROID [Concomitant]
     Active Substance: UNSPECIFIED INGREDIENT
     Route: 065

REACTIONS (20)
  - Asthma [Unknown]
  - Hypertension [Unknown]
  - Skin disorder [Unknown]
  - Hepatic steatosis [Unknown]
  - Secretion discharge [Unknown]
  - Arrhythmia [Unknown]
  - Weight increased [Unknown]
  - Blood cholesterol increased [Unknown]
  - Candida infection [Unknown]
  - Depression [Unknown]
  - Chronic obstructive pulmonary disease [Unknown]
  - Wheezing [Unknown]
  - Dyspnoea [Unknown]
  - Glucose tolerance impaired [Unknown]
  - Thrombosis [Unknown]
  - Cushing^s syndrome [Unknown]
  - Cardiomegaly [Unknown]
  - Contusion [Unknown]
  - Bronchospasm [Unknown]
  - Tachycardia [Unknown]

NARRATIVE: CASE EVENT DATE: 2000
